FAERS Safety Report 8985297 (Version 3)
Quarter: 2013Q3

REPORT INFORMATION
  Report Type: Report from Study
  Country: US (occurrence: US)
  Receive Date: 20121226
  Receipt Date: 20130903
  Transmission Date: 20140515
  Serious: Yes (Hospitalization)
  Sender: FDA-Public Use
  Company Number: US-JNJFOC-20121209249

PATIENT
  Sex: Male

DRUGS (10)
  1. ABIRATERONE ACETATE [Suspect]
     Route: 048
  2. ABIRATERONE ACETATE [Suspect]
     Indication: PROSTATE CANCER
     Route: 048
     Dates: start: 20111218
  3. SUNITINIB [Suspect]
     Indication: PROSTATE CANCER
     Route: 048
     Dates: start: 20121026
  4. SUNITINIB [Suspect]
     Indication: PROSTATE CANCER
     Route: 048
     Dates: start: 20120928, end: 20121011
  5. CENTRUM SILVER [Concomitant]
     Route: 048
  6. CALTRATE [Concomitant]
     Route: 048
  7. XGEVA [Concomitant]
     Route: 058
  8. ELIGARD [Concomitant]
     Route: 030
  9. PREDNISONE [Concomitant]
     Route: 048
  10. NORVASC [Concomitant]
     Route: 048

REACTIONS (1)
  - Pneumonia [Unknown]
